FAERS Safety Report 8243740-9 (Version None)
Quarter: 2012Q1

REPORT INFORMATION
  Report Type: 
  Country: None (occurrence: None)
  Receive Date: 20120329
  Receipt Date: 20110712
  Transmission Date: 20120608
  Serious: Yes (Disabling)
  Sender: FDA-Public Use
  Company Number: US-MYLANLABS-2011S1011038

PATIENT
  Age: 46 Year
  Sex: Female
  Weight: 54.43 kg

DRUGS (6)
  1. EMSAM [Suspect]
     Indication: DEPRESSION
     Dosage: CHANGED QD.
     Route: 062
     Dates: start: 20071001, end: 20080401
  2. EMSAM [Suspect]
     Dosage: CHANGED QD.
     Route: 062
     Dates: start: 20080601, end: 20100601
  3. SONATA [Concomitant]
     Indication: INSOMNIA
  4. EMSAM [Suspect]
     Dosage: CHANGED QD.
     Route: 062
     Dates: start: 20110301, end: 20110601
  5. TRAZODONE HCL [Concomitant]
  6. ACYCLOVIR [Concomitant]
     Indication: HERPES SIMPLEX

REACTIONS (1)
  - TENOSYNOVITIS [None]
